FAERS Safety Report 21129746 (Version 1)
Quarter: 2022Q3

REPORT INFORMATION
  Report Type: Spontaneous
  Country: IL (occurrence: IL)
  Receive Date: 20220726
  Receipt Date: 20220726
  Transmission Date: 20221027
  Serious: No
  Sender: FDA-Public Use
  Company Number: IL-ALKEM LABORATORIES LIMITED-IL-ALKEM-2022-06648

PATIENT
  Age: 27 Year
  Sex: Female

DRUGS (8)
  1. CLOBAZAM [Suspect]
     Active Substance: CLOBAZAM
     Indication: Epilepsy
     Dosage: 10 MILLIGRAM, BID
     Route: 065
  2. LEVETIRACETAM [Suspect]
     Active Substance: LEVETIRACETAM
     Indication: Epilepsy
     Dosage: 500 MILLIGRAM, TID
     Route: 065
  3. LEVETIRACETAM [Suspect]
     Active Substance: LEVETIRACETAM
     Dosage: 1000 MILLIGRAM, BID
     Route: 065
  4. LEVETIRACETAM [Suspect]
     Active Substance: LEVETIRACETAM
     Dosage: 1500 MILLIGRAM, BID
     Route: 065
  5. LACOSAMIDE [Suspect]
     Active Substance: LACOSAMIDE
     Indication: Epilepsy
     Dosage: 100 MILLIGRAM, BID
     Route: 065
  6. CARBAMAZEPINE [Suspect]
     Active Substance: CARBAMAZEPINE
     Indication: Epilepsy
     Dosage: 600 MILLIGRAM, BID
     Route: 065
  7. CARBAMAZEPINE [Suspect]
     Active Substance: CARBAMAZEPINE
     Dosage: 800 MILLIGRAM, BID
     Route: 065
  8. CARBAMAZEPINE [Suspect]
     Active Substance: CARBAMAZEPINE
     Dosage: 3000 MILLIGRAM PER DAY
     Route: 065

REACTIONS (1)
  - Drug ineffective [Unknown]
